FAERS Safety Report 24271896 (Version 1)
Quarter: 2024Q3

REPORT INFORMATION
  Report Type: Spontaneous
  Country: CN (occurrence: CN)
  Receive Date: 20240902
  Receipt Date: 20240902
  Transmission Date: 20241017
  Serious: Yes (Other)
  Sender: TAKEDA
  Company Number: CN-HUTCHMED LIMITED-HMP2024CN01958

PATIENT
  Age: 68 Year
  Sex: Female
  Weight: 67 kg

DRUGS (3)
  1. FRUQUINTINIB [Suspect]
     Active Substance: FRUQUINTINIB
     Indication: Colon cancer
     Dosage: 3 MILLIGRAM
     Route: 048
     Dates: start: 20240709, end: 20240729
  2. SINTILIMAB [Concomitant]
     Active Substance: SINTILIMAB
     Indication: Colon cancer
     Dosage: 200 MILLIGRAM, QD
     Route: 041
     Dates: start: 20240709, end: 20240709
  3. GIMERACIL\OTERACIL\TEGAFUR [Concomitant]
     Active Substance: GIMERACIL\OTERACIL POTASSIUM\TEGAFUR
     Indication: Colon cancer
     Dosage: 20 MILLIGRAM, BID
     Route: 048
     Dates: start: 20240709, end: 20240722

REACTIONS (1)
  - Myelosuppression [Recovering/Resolving]

NARRATIVE: CASE EVENT DATE: 20240801
